FAERS Safety Report 7763658 (Version 2)
Quarter: 2013Q4

REPORT INFORMATION
  Report Type: Spontaneous
  Country: US (occurrence: US)
  Receive Date: 20110118
  Receipt Date: 20131226
  Transmission Date: 20140711
  Serious: Yes (Hospitalization, Other)
  Sender: FDA-Public Use
  Company Number: US-ROCHE-731302

PATIENT
  Age: 22 Year
  Sex: Female
  Weight: 106.6 kg

DRUGS (2)
  1. ACCUTANE [Suspect]
     Indication: ACNE
     Route: 065
     Dates: start: 1990, end: 1991
  2. ACCUTANE [Suspect]
     Route: 065

REACTIONS (12)
  - Gastrointestinal injury [Unknown]
  - Colitis ulcerative [Unknown]
  - Inflammatory bowel disease [Unknown]
  - Depression [Unknown]
  - Gastric ulcer [Unknown]
  - Volvulus [Unknown]
  - Large intestine polyp [Unknown]
  - Headache [Unknown]
  - Iron deficiency anaemia [Unknown]
  - Back pain [Unknown]
  - Nasopharyngitis [Unknown]
  - Tonsillitis [Unknown]
